FAERS Safety Report 15679008 (Version 4)
Quarter: 2019Q4

REPORT INFORMATION
  Report Type: Report from Study
  Country: CL (occurrence: CL)
  Receive Date: 20181202
  Receipt Date: 20191218
  Transmission Date: 20200122
  Serious: Yes (Hospitalization, Other)
  Sender: FDA-Public Use
  Company Number: CL-BRISTOL-MYERS SQUIBB COMPANY-BMS-2018-109779

PATIENT
  Age: 76 Year
  Sex: Female

DRUGS (1)
  1. ABATACEPT [Suspect]
     Active Substance: ABATACEPT
     Indication: RHEUMATOID ARTHRITIS
     Dosage: 125 MILLIGRAM, QWK
     Route: 058
     Dates: start: 20180326

REACTIONS (3)
  - Nasopharyngitis [Recovering/Resolving]
  - Gallbladder disorder [Recovered/Resolved]
  - Flank pain [Not Recovered/Not Resolved]

NARRATIVE: CASE EVENT DATE: 20180831
